FAERS Safety Report 23639586 (Version 2)
Quarter: 2024Q1

REPORT INFORMATION
  Report Type: Spontaneous
  Country: US (occurrence: US)
  Receive Date: 20240316
  Receipt Date: 20240331
  Transmission Date: 20240410
  Serious: Yes (Hospitalization)
  Sender: FDA-Public Use
  Company Number: US-TEVA-VS-3167205

PATIENT
  Sex: Female

DRUGS (5)
  1. AZACITIDINE [Suspect]
     Active Substance: AZACITIDINE
     Indication: Acute myeloid leukaemia
     Dosage: FIRST CYCLE: ON DAYS 1-7 OF 21 DAYS CYCLE; SECOND CYCLE: ON DAYS 1-7 OF 14 DAYS CYCLE
     Route: 065
  2. VENETOCLAX [Suspect]
     Active Substance: VENETOCLAX
     Indication: Acute myeloid leukaemia
     Dosage: FIRST CYCLE: ON DAY 2 OF 21 DAYS CYCLE AND SECOND CYCLE: ON DAY 2 OF 14 DAYS CYCLE
     Route: 065
  3. VENETOCLAX [Suspect]
     Active Substance: VENETOCLAX
     Indication: Acute myeloid leukaemia
     Dosage: FIRST CYCLE: ON DAY 3 OF 21 DAYS CYCLE AND SECOND CYCLE: ON DAY 3 OF 14 DAYS CYCLE
     Route: 065
  4. VENETOCLAX [Suspect]
     Active Substance: VENETOCLAX
     Indication: Acute myeloid leukaemia
     Dosage: FIRST CYCLE: ON DAY 1 OF 21 DAYS CYCLE AND SECOND CYCLE: ON DAY 1 OF 14 DAYS CYCLE
     Route: 065
  5. VENETOCLAX [Suspect]
     Active Substance: VENETOCLAX
     Indication: Acute myeloid leukaemia
     Dosage: FIRST CYCLE: ON DAY 4-21 OF 21 DAYS CYCLE AND SECOND CYCLE: ON DAY 4-14 OF 14 DAYS CYCLE
     Route: 065

REACTIONS (2)
  - Myelosuppression [Recovering/Resolving]
  - Respiratory syncytial virus infection [Unknown]
